FAERS Safety Report 17004960 (Version 1)
Quarter: 2019Q4

REPORT INFORMATION
  Report Type: Spontaneous
  Country: US (occurrence: US)
  Receive Date: 20190926
  Receipt Date: 20190926
  Transmission Date: 20200122
  Serious: No
  Sender: FDA-Public Use
  Company Number: None

PATIENT
  Age: 59 Year
  Sex: Female

DRUGS (2)
  1. CAPECITABINE 150MG NOVADOZ PHARMACEUTICALS [Suspect]
     Active Substance: CAPECITABINE
     Indication: BREAST CANCER
     Route: 048
     Dates: start: 20190913
  2. CAPECITABINE 500 MG NOVADOZ [Suspect]
     Active Substance: CAPECITABINE
     Indication: BREAST CANCER
     Route: 048
     Dates: start: 20190913

REACTIONS (4)
  - Pallor [None]
  - Weight decreased [None]
  - Dry skin [None]
  - Decreased appetite [None]

NARRATIVE: CASE EVENT DATE: 20190923
